FAERS Safety Report 24043733 (Version 1)
Quarter: 2024Q3

REPORT INFORMATION
  Report Type: Spontaneous
  Country: JP (occurrence: JP)
  Receive Date: 20240703
  Receipt Date: 20240703
  Transmission Date: 20241017
  Serious: Yes (Death, Other)
  Sender: ROCHE
  Company Number: JP-CHUGAI-2024021781AA

PATIENT
  Age: 7 Decade
  Sex: Female

DRUGS (1)
  1. ROZLYTREK [Suspect]
     Active Substance: ENTRECTINIB
     Indication: Non-small cell lung cancer
     Dosage: 40 MILLIGRAM
     Route: 050

REACTIONS (3)
  - Cardiac dysfunction [Unknown]
  - Neuropathy peripheral [Not Recovered/Not Resolved]
  - Disease progression [Fatal]
